FAERS Safety Report 6343620-X (Version None)
Quarter: 2009Q3

REPORT INFORMATION
  Report Type: 
  Country: None (occurrence: None)
  Receive Date: 20090908
  Receipt Date: 20090827
  Transmission Date: 20100115
  Serious: Yes (Death)
  Sender: FDA-Public Use
  Company Number: US-AVENTIS-200919443GDDC

PATIENT
  Age: 76 Year
  Sex: Male
  Weight: 88.2 kg

DRUGS (22)
  1. TAXOTERE [Suspect]
     Dosage: DOSE: 447 MG AS TOTAL DOSE THIS COURSE
     Route: 042
     Dates: start: 20090630, end: 20090810
  2. PREDNISONE TAB [Suspect]
     Dosage: DOSE: 53 MG AS TOTAL DOSE THIS COURSE
     Route: 048
     Dates: start: 20090630, end: 20090821
  3. CODE UNBROKEN [Suspect]
     Dosage: DOSE: 53 MG AS TOTAL DOSE THIS COURSE
     Route: 048
     Dates: start: 20090630, end: 20090821
  4. DEXAMETHASONE [Suspect]
     Dosage: DOSE: 60 MG AS TOTAL DOSE THIS COURSE
     Route: 048
     Dates: start: 20090630, end: 20090810
  5. PROSCAR [Concomitant]
     Indication: BENIGN PROSTATIC HYPERPLASIA
     Route: 048
  6. LISINOPRIL [Concomitant]
     Route: 048
     Dates: end: 20090601
  7. HYDROCORTISONE [Concomitant]
     Dosage: DOSE: 10 MG IN AM AND 5 MG IN PM
     Route: 048
  8. HYDROCORTISONE [Concomitant]
     Dosage: DOSE: 20 MG IN AM AND 10 MG IN PM
     Route: 048
     Dates: start: 20090601
  9. FERROUS SULFATE TAB [Concomitant]
     Route: 048
  10. DHEA [Concomitant]
     Route: 048
  11. CHOLECALCIFEROL [Concomitant]
     Route: 048
  12. GLUCOSAMINE W/CHONDROITIN SULFATE [Concomitant]
     Dosage: DOSE: 500/250
     Route: 048
  13. CLARITIN [Concomitant]
     Dosage: DOSE: 1 TABLET QD
     Route: 048
  14. ASPIRIN [Concomitant]
     Route: 048
  15. LUPRON [Concomitant]
  16. MULTI-VITAMINS [Concomitant]
  17. CALCIUM WITH VITAMIN D             /00944201/ [Concomitant]
  18. LOPERAMIDE [Concomitant]
  19. ATENOLOL [Concomitant]
     Route: 048
     Dates: start: 20090630
  20. HYDROCHLOROTHIAZIDE [Concomitant]
     Dosage: DOSE: UNK
  21. ZOFRAN [Concomitant]
     Indication: NAUSEA
     Dosage: DOSE: UNK
  22. COMPAZINE [Concomitant]
     Indication: NAUSEA
     Dosage: DOSE: UNK

REACTIONS (1)
  - SUDDEN DEATH [None]
